FAERS Safety Report 4622274-4 (Version None)
Quarter: 2005Q1

REPORT INFORMATION
  Report Type: 
  Country: None (occurrence: None)
  Receive Date: 20050328
  Receipt Date: 20050315
  Transmission Date: 20050727
  Serious: Yes (Hospitalization)
  Sender: FDA-Public Use
  Company Number: FABR-10720

PATIENT
  Age: 27 Year
  Sex: Male
  Weight: 70 kg

DRUGS (7)
  1. FABRAZYME [Suspect]
     Indication: FABRY'S DISEASE
     Dosage: 1 MG/KG Q2WKS IV
     Route: 042
     Dates: start: 20030121
  2. WARFARIN [Concomitant]
  3. ASPIRIN [Concomitant]
  4. FAMOTIDINE [Concomitant]
  5. FERROUS SULFATE TAB [Concomitant]
  6. ACETAMINOPHEN [Concomitant]
  7. HYDROXYZINE [Concomitant]

REACTIONS (3)
  - DIZZINESS [None]
  - SUDDEN HEARING LOSS [None]
  - WHITE BLOOD CELL COUNT INCREASED [None]
